FAERS Safety Report 15220281 (Version 5)
Quarter: 2019Q1

REPORT INFORMATION
  Report Type: Report from Study
  Country: None (occurrence: US)
  Receive Date: 20180731
  Receipt Date: 20190207
  Transmission Date: 20190417
  Serious: Yes (Hospitalization)
  Sender: FDA-Public Use
  Company Number: US-ABBVIE-18K-163-2431988-00

PATIENT
  Age: 58 Year
  Sex: Male
  Weight: 86.26 kg

DRUGS (2)
  1. HUMIRA [Suspect]
     Active Substance: ADALIMUMAB
     Indication: CROHN^S DISEASE
     Route: 058
  2. HUMIRA [Suspect]
     Active Substance: ADALIMUMAB
     Route: 058

REACTIONS (9)
  - Adrenal insufficiency [Unknown]
  - Executive dysfunction [Unknown]
  - Endocrine disorder [Unknown]
  - Hypopituitarism [Unknown]
  - Hypothyroidism [Unknown]
  - Hypotension [Recovering/Resolving]
  - Cognitive disorder [Unknown]
  - Cardiac disorder [Unknown]
  - Head injury [Unknown]

NARRATIVE: CASE EVENT DATE: 20190103
